FAERS Safety Report 4370946-1 (Version None)
Quarter: 2004Q2

REPORT INFORMATION
  Report Type: 
  Country: None (occurrence: None)
  Receive Date: 20040601
  Receipt Date: 20040519
  Transmission Date: 20050107
  Serious: Yes (Life-Threatening, Hospitalization)
  Sender: FDA-Public Use
  Company Number: EMADSS2002002784

PATIENT
  Age: 57 Year
  Sex: Male

DRUGS (7)
  1. DUROGESIC (FENTANYL) [Suspect]
     Indication: PAIN
     Dosage: 25 UG/HR, SUBCUTANEOUS
     Route: 058
     Dates: start: 20020311
  2. TOLTERODINE (UNSPECIFIED) TOLTERODINE [Concomitant]
  3. CELECOXIB (UNSPECIFIED) CELECOXIB [Concomitant]
  4. CODEINE PHOSPHATE (CODEINE PHOSPHATE) [Concomitant]
  5. PAROXETINE HCL [Concomitant]
  6. BACLOFEN (BACLOFEN) UNSPECIFIED [Concomitant]
  7. VITAMIN B COMPLEX (B-KOMPLEX ^LECIVA^) UNSPECIFIED [Concomitant]

REACTIONS (1)
  - STATUS EPILEPTICUS [None]
